FAERS Safety Report 26043005 (Version 1)
Quarter: 2025Q4

REPORT INFORMATION
  Report Type: Spontaneous
  Country: US (occurrence: US)
  Receive Date: 20251113
  Receipt Date: 20251113
  Transmission Date: 20260118
  Serious: No
  Sender: ANI
  Company Number: US-ANIPHARMA-2025-US-047161

PATIENT
  Sex: Male

DRUGS (11)
  1. CORTICOTROPIN [Suspect]
     Active Substance: CORTICOTROPIN
     Indication: Nephrotic syndrome
     Dosage: 40 GM TWO TIMES A WEEK
     Dates: start: 2022
  2. FINASTERIDE [Concomitant]
     Active Substance: FINASTERIDE
  3. FLAXSEED OIL OMEGA-3 [Concomitant]
  4. MELALEUCA EXTRACT [Concomitant]
  5. FISH OIL [Concomitant]
     Active Substance: FISH OIL
  6. TRIAMCINOLONE ACETONIDE [Concomitant]
     Active Substance: TRIAMCINOLONE ACETONIDE
  7. HM VITAMIN B12 [Concomitant]
  8. VITAMIN D3 [Concomitant]
     Active Substance: CHOLECALCIFEROL
  9. CENTRUM SILVER 50+MEN [Concomitant]
  10. VITAMIN C [Concomitant]
     Active Substance: ASCORBIC ACID
  11. TAMSULOSIN HYDROCHLORIDE [Concomitant]
     Active Substance: TAMSULOSIN HYDROCHLORIDE

REACTIONS (4)
  - Fall [Unknown]
  - Dry skin [Not Recovered/Not Resolved]
  - Skin laceration [Not Recovered/Not Resolved]
  - Contusion [Not Recovered/Not Resolved]
